FAERS Safety Report 9432194 (Version 2)
Quarter: 2013Q3

REPORT INFORMATION
  Report Type: Report from Study
  Country: US (occurrence: US)
  Receive Date: 20130731
  Receipt Date: 20130906
  Transmission Date: 20140515
  Serious: Yes (Hospitalization, Other)
  Sender: FDA-Public Use
  Company Number: US-ASTELLAS-2013US007945

PATIENT
  Age: 43 Year
  Sex: Male
  Weight: 73 kg

DRUGS (3)
  1. TACROLIMUS CAPSULES [Suspect]
     Indication: RENAL TRANSPLANT
     Dosage: 2 MG, BID
     Route: 048
     Dates: start: 20110126, end: 20110331
  2. MYCOPHENOLATE MOFETIL [Suspect]
     Indication: RENAL TRANSPLANT
     Dosage: 1000 MG, BID
     Route: 048
     Dates: start: 20110126, end: 20110131
  3. MYCOPHENOLATE MOFETIL [Suspect]
     Dosage: UNK
     Route: 065
     Dates: start: 20110131

REACTIONS (6)
  - Pyrexia [Recovered/Resolved]
  - Febrile neutropenia [Recovered/Resolved]
  - Ureteric stenosis [Recovered/Resolved]
  - Ureteric operation [Recovered/Resolved]
  - Cystitis klebsiella [Recovered/Resolved]
  - Blood creatinine increased [Recovered/Resolved]
